FAERS Safety Report 7948146-5 (Version None)
Quarter: 2011Q4

REPORT INFORMATION
  Report Type: 
  Country: None (occurrence: None)
  Receive Date: 20111125
  Receipt Date: 20111111
  Transmission Date: 20120403
  Serious: Yes (Hospitalization)
  Sender: FDA-Public Use
  Company Number: FK201102695

PATIENT
  Age: 54 Year
  Sex: Female

DRUGS (3)
  1. LEUCOVORIN CALCIUM [Suspect]
     Indication: CHEMOTHERAPY
     Dates: start: 20080301
  2. FLUOROURACIL [Suspect]
     Indication: CHEMOTHERAPY
     Dates: start: 20080301
  3. OXALIPLATIN [Suspect]
     Indication: CHEMOTHERAPY
     Dates: start: 20080301

REACTIONS (5)
  - ARTHRITIS [None]
  - SKIN EXFOLIATION [None]
  - ARTHRALGIA [None]
  - SKIN TIGHTNESS [None]
  - MALAISE [None]
